FAERS Safety Report 22766446 (Version 5)
Quarter: 2025Q2

REPORT INFORMATION
  Report Type: Report from Study
  Country: US (occurrence: US)
  Receive Date: 20230731
  Receipt Date: 20250611
  Transmission Date: 20250717
  Serious: Yes (Hospitalization, Other)
  Sender: ABBVIE
  Company Number: US-ABBVIE-5338202

PATIENT
  Sex: Female

DRUGS (4)
  1. HUMIRA [Suspect]
     Active Substance: ADALIMUMAB
     Indication: Colitis ulcerative
     Route: 058
     Dates: start: 20221212
  2. HUMIRA [Suspect]
     Active Substance: ADALIMUMAB
     Route: 058
  3. HUMIRA [Suspect]
     Active Substance: ADALIMUMAB
     Route: 058
  4. PREDNISONE [Concomitant]
     Active Substance: PREDNISONE
     Indication: Product used for unknown indication

REACTIONS (9)
  - Deafness neurosensory [Not Recovered/Not Resolved]
  - Colitis ulcerative [Recovering/Resolving]
  - Stress [Unknown]
  - Constipation [Unknown]
  - Migraine [Unknown]
  - Balance disorder [Unknown]
  - Cerebral disorder [Unknown]
  - Fall [Unknown]
  - Walking aid user [Unknown]

NARRATIVE: CASE EVENT DATE: 20240101
